FAERS Safety Report 6608173-7 (Version None)
Quarter: 2010Q1

REPORT INFORMATION
  Report Type: 
  Country: None (occurrence: None)
  Receive Date: 20100301
  Receipt Date: 20100217
  Transmission Date: 20100710
  Serious: Yes (Hospitalization)
  Sender: FDA-Public Use
  Company Number: JP-MEDIMMUNE-MEDI-0010595

PATIENT
  Sex: Female

DRUGS (1)
  1. SYNAGIS [Suspect]
     Indication: PREMATURE BABY
     Route: 030
     Dates: start: 20080221, end: 20080221

REACTIONS (3)
  - CONVULSION [None]
  - FEEDING DISORDER [None]
  - SOMNOLENCE [None]
